FAERS Safety Report 4906710-1 (Version None)
Quarter: 2006Q1

REPORT INFORMATION
  Report Type: 
  Country: None (occurrence: None)
  Receive Date: 20060209
  Receipt Date: 20041118
  Transmission Date: 20060701
  Serious: Yes (Death, Hospitalization)
  Sender: FDA-Public Use
  Company Number: DE-ROCHE-386561

PATIENT
  Age: 53 Year
  Sex: Male
  Weight: 80 kg

DRUGS (14)
  1. DACLIZUMAB [Suspect]
     Route: 042
     Dates: start: 20041021
  2. DACLIZUMAB [Suspect]
     Route: 042
     Dates: end: 20041128
  3. MYCOPHENOLATE MOFETIL [Suspect]
     Route: 048
     Dates: start: 20041022, end: 20041114
  4. TACROLIMUS [Suspect]
     Route: 048
     Dates: start: 20041022, end: 20041128
  5. TACROLIMUS [Suspect]
     Route: 048
     Dates: start: 20041129, end: 20041130
  6. URBASON [Suspect]
     Route: 042
     Dates: start: 20041021
  7. DIFLUCAN [Concomitant]
     Dosage: DOSE REPORTED AS 1-0-0
  8. VALCYTE [Concomitant]
     Dosage: DOSE REPORTED AS 1-0-0
  9. CORDAREX [Concomitant]
     Dosage: DOSE REPORTED AS 1-0-0
  10. PRAVASIN [Concomitant]
     Dates: start: 20041022, end: 20041129
  11. BELOC-ZOK MITE [Concomitant]
     Dosage: DOSE REPORTED AS 1/2-0-1/2
  12. CORVATON [Concomitant]
     Dosage: DOSE REPORTED AS 0-0-1
  13. LIQUAEMIN INJ [Concomitant]
  14. METOPROLOL [Concomitant]
     Dates: start: 20041115, end: 20041129

REACTIONS (6)
  - CANDIDA PNEUMONIA [None]
  - PNEUMONIA ASPERGILLUS [None]
  - PNEUMONIA FUNGAL [None]
  - RETROPERITONEAL HAEMATOMA [None]
  - SEPSIS [None]
  - SUBCUTANEOUS ABSCESS [None]
